FAERS Safety Report 9050499 (Version 1)
Quarter: 2013Q1

REPORT INFORMATION
  Report Type: Spontaneous
  Country: US (occurrence: US)
  Receive Date: 20130205
  Receipt Date: 20130205
  Transmission Date: 20140127
  Serious: Yes (Other)
  Sender: FDA-Public Use
  Company Number: US-PFIZER INC-2013036742

PATIENT
  Sex: Female

DRUGS (2)
  1. CHAPSTICK LIP BALM [Suspect]
  2. CHAPSTICK CLASSIC ORIGINAL [Suspect]
     Dosage: UNK

REACTIONS (3)
  - Haemorrhage [Unknown]
  - Dependence [Unknown]
  - Chapped lips [Unknown]
